FAERS Safety Report 16817178 (Version 3)
Quarter: 2020Q1

REPORT INFORMATION
  Report Type: Spontaneous
  Country: AU (occurrence: AU)
  Receive Date: 20190917
  Receipt Date: 20200310
  Transmission Date: 20200409
  Serious: Yes (Death, Other)
  Sender: FDA-Public Use
  Company Number: AU-TASMAN PHARMA, INC.-2019TSM00099

PATIENT
  Sex: Male

DRUGS (1)
  1. VERSACLOZ [Suspect]
     Active Substance: CLOZAPINE
     Dosage: UNK
     Dates: start: 20181108

REACTIONS (11)
  - Tachycardia [Unknown]
  - Death [Fatal]
  - Hospice care [Unknown]
  - Malignant neoplasm of unknown primary site [Unknown]
  - Oesophageal dilatation [Unknown]
  - Swelling [Unknown]
  - Pallor [Unknown]
  - Gait disturbance [Unknown]
  - Cough [Unknown]
  - Post procedural haemorrhage [Unknown]
  - Muscular weakness [Unknown]

NARRATIVE: CASE EVENT DATE: 2019
